FAERS Safety Report 8314947-7 (Version None)
Quarter: 2012Q2

REPORT INFORMATION
  Report Type: 
  Country: None (occurrence: None)
  Receive Date: 20120426
  Receipt Date: 20120419
  Transmission Date: 20120825
  Serious: Yes (Hospitalization, Disabling, Other)
  Sender: FDA-Public Use
  Company Number: US-MERCK-1112USA01466

PATIENT
  Age: 55 Year
  Sex: Female
  Weight: 60 kg

DRUGS (4)
  1. FOSAMAX [Suspect]
     Route: 048
     Dates: start: 20040310, end: 20060101
  2. BONIVA [Suspect]
     Indication: OSTEOPENIA
     Route: 048
     Dates: start: 20060101
  3. SYNTHROID [Concomitant]
     Indication: AUTOIMMUNE THYROIDITIS
     Route: 065
     Dates: start: 19850101
  4. FOSAMAX [Suspect]
     Indication: OSTEOPENIA
     Route: 048
     Dates: start: 20000101

REACTIONS (46)
  - URINARY TRACT INFECTION [None]
  - DEPRESSION [None]
  - URINE ABNORMALITY [None]
  - MITRAL VALVE PROLAPSE [None]
  - CARDIAC ARREST [None]
  - CHEST PAIN [None]
  - FALL [None]
  - IRRITABLE BOWEL SYNDROME [None]
  - RHEUMATOID ARTHRITIS [None]
  - PULMONARY VALVE INCOMPETENCE [None]
  - EAR PAIN [None]
  - COCCYDYNIA [None]
  - ANXIETY [None]
  - TOOTH DISORDER [None]
  - VARICOSE VEINS VAGINAL [None]
  - PARAESTHESIA [None]
  - BLOOD CHOLESTEROL INCREASED [None]
  - TRIGGER FINGER [None]
  - TRICUSPID VALVE INCOMPETENCE [None]
  - CARDIAC MURMUR [None]
  - OSTEOPOROSIS [None]
  - MOTOR DYSFUNCTION [None]
  - FEMUR FRACTURE [None]
  - ENDOMETRIAL CANCER STAGE I [None]
  - EAR DISORDER [None]
  - LOW TURNOVER OSTEOPATHY [None]
  - INSOMNIA [None]
  - HYPOTHYROIDISM [None]
  - FOOT FRACTURE [None]
  - URINE ODOUR ABNORMAL [None]
  - ELECTROCARDIOGRAM ST-T CHANGE [None]
  - GOUT [None]
  - FATIGUE [None]
  - TONSILLAR DISORDER [None]
  - UTERINE LEIOMYOMA [None]
  - MUSCULOSKELETAL DISORDER [None]
  - EYE DISORDER [None]
  - GENITAL HERPES [None]
  - FRACTURE DELAYED UNION [None]
  - SINUS TACHYCARDIA [None]
  - ORTHOSTATIC HYPOTENSION [None]
  - ANAEMIA POSTOPERATIVE [None]
  - DEHYDRATION [None]
  - MUSCULAR WEAKNESS [None]
  - AORTIC VALVE INCOMPETENCE [None]
  - APPENDIX DISORDER [None]
